FAERS Safety Report 7129017-3 (Version None)
Quarter: 2010Q4

REPORT INFORMATION
  Report Type: 
  Country: None (occurrence: None)
  Receive Date: 20101130
  Receipt Date: 20101117
  Transmission Date: 20110411
  Serious: Yes (Life-Threatening)
  Sender: FDA-Public Use
  Company Number: GXKR2010US13064

PATIENT
  Age: 43 Year
  Sex: Female

DRUGS (1)
  1. METHYLPREDNISOLONE 4MG TAB [Suspect]
     Indication: CHRONIC OBSTRUCTIVE PULMONARY DISEASE
     Dosage: 60 MG, Q6H
     Route: 042

REACTIONS (7)
  - ACUTE RESPIRATORY FAILURE [None]
  - ENDOTRACHEAL INTUBATION [None]
  - HYPERCAPNIA [None]
  - MECHANICAL VENTILATION [None]
  - MUSCULAR WEAKNESS [None]
  - MYOPATHY [None]
  - RESPIRATORY GAS EXCHANGE DISORDER [None]
